FAERS Safety Report 4506586-0 (Version None)
Quarter: 2004Q4

REPORT INFORMATION
  Report Type: 
  Country: None (occurrence: None)
  Receive Date: 20041122
  Receipt Date: 20041110
  Transmission Date: 20050328
  Serious: Yes (Other)
  Sender: FDA-Public Use
  Company Number: AU-JNJFOC-20041102757

PATIENT
  Age: 35 Year
  Sex: Male

DRUGS (7)
  1. TRAMAL [Suspect]
     Route: 065
  2. TRAMAL [Suspect]
     Indication: DRUG USE FOR UNKNOWN INDICATION
     Route: 065
  3. OLANZAPINE [Interacting]
     Indication: DRUG USE FOR UNKNOWN INDICATION
     Route: 065
  4. MIRTAZAPINE [Concomitant]
     Route: 065
  5. PROCHLORPERAZINE [Concomitant]
     Route: 065
  6. DIAZEPAM [Concomitant]
     Route: 065
  7. LANSOPRAZOLE [Concomitant]
     Route: 065

REACTIONS (2)
  - DRUG INTERACTION [None]
  - SEROTONIN SYNDROME [None]
